FAERS Safety Report 23813588 (Version 3)
Quarter: 2024Q2

REPORT INFORMATION
  Report Type: Spontaneous
  Country: DE (occurrence: DE)
  Receive Date: 20240503
  Receipt Date: 20240614
  Transmission Date: 20240716
  Serious: Yes (Other)
  Sender: FDA-Public Use
  Company Number: DE-BFARM-24002673

PATIENT
  Age: 70 Year
  Sex: Male
  Weight: 95 kg

DRUGS (13)
  1. AMLODIPINE [Suspect]
     Active Substance: AMLODIPINE BESYLATE
     Indication: Cardiovascular disorder
     Dosage: 2.5 MILLIGRAM, ONCE A DAY (0-0-0.5)
     Route: 065
     Dates: end: 20240318
  2. CHOLECALCIFEROL [Concomitant]
     Active Substance: CHOLECALCIFEROL
     Indication: Product used for unknown indication
     Dosage: 1000 INTERNATIONAL UNIT, ONCE A DAY (1-0-0)
     Route: 065
     Dates: start: 20160202
  3. SIMVASTATIN [Concomitant]
     Active Substance: SIMVASTATIN
     Indication: Product used for unknown indication
     Dosage: 40 MILLIGRAM, ONCE A DAY (0-0-1)
     Route: 065
     Dates: start: 20160202
  4. NALOXONE HYDROCHLORIDE\TILIDINE HYDROCHLORIDE [Concomitant]
     Active Substance: NALOXONE HYDROCHLORIDE\TILIDINE HYDROCHLORIDE
     Indication: Product used for unknown indication
     Dosage: 1 DOSAGE FORM, TWO TIMES A DAY (1-0-1 TO 4X1 B FOR PAIN)
     Route: 065
     Dates: start: 20160202
  5. PANTOPRAZOLE SODIUM [Concomitant]
     Active Substance: PANTOPRAZOLE SODIUM
     Indication: Product used for unknown indication
     Dosage: 40 MILLIGRAM, ONCE A DAY (1-0-0)
     Route: 065
     Dates: start: 20160202
  6. Novalgin [Concomitant]
     Indication: Product used for unknown indication
     Dosage: 40 DROPS, MAXIMUM DOSE 160 DROPS, DAILY, AS NECESSARY
     Route: 065
     Dates: start: 20160202
  7. RANEXA [Concomitant]
     Active Substance: RANOLAZINE
     Indication: Product used for unknown indication
     Dosage: 500 MILLIGRAM, TWO TIMES A DAY (1-0-1)
     Route: 065
     Dates: start: 20160202
  8. FENOTEROL HYDROBROMIDE\IPRATROPIUM BROMIDE [Concomitant]
     Active Substance: FENOTEROL HYDROBROMIDE\IPRATROPIUM BROMIDE
     Indication: Product used for unknown indication
     Dosage: 1-3 TIMES DAILY
     Route: 065
     Dates: start: 20160202
  9. ASPIRIN [Concomitant]
     Active Substance: ASPIRIN
     Indication: Product used for unknown indication
     Dosage: 100 MILLIGRAM, ONCE A DAY (1-0-0)
     Route: 065
     Dates: start: 20160202
  10. CITALOPRAM [Concomitant]
     Active Substance: CITALOPRAM\CITALOPRAM HYDROBROMIDE
     Indication: Depression
     Dosage: 30 MILLIGRAM, ONCE A DAY (1-0-0)
     Route: 065
     Dates: end: 20240318
  11. NITROLINGUAL [Concomitant]
     Active Substance: NITROGLYCERIN
     Indication: Angina pectoris
     Dosage: 1-2 STROKES FOR ANGINA
     Route: 065
     Dates: start: 20160202
  12. FOLIC ACID [Concomitant]
     Active Substance: FOLIC ACID
     Indication: Product used for unknown indication
     Dosage: 5 MILLIGRAM, ONCE A DAY
     Route: 065
     Dates: start: 20160202
  13. CITALOPRAM [Concomitant]
     Active Substance: CITALOPRAM\CITALOPRAM HYDROBROMIDE
     Indication: Depression
     Dosage: 20 MILLIGRAM, ONCE A DAY
     Route: 065
     Dates: start: 20230517

REACTIONS (17)
  - Syncope [Unknown]
  - Varicose vein [Unknown]
  - Dyspnoea [Unknown]
  - Gynaecomastia [Unknown]
  - Constipation [Unknown]
  - Asthenia [Unknown]
  - Tremor [Unknown]
  - Dizziness [Unknown]
  - Hyperhidrosis [Unknown]
  - Blood pressure decreased [Unknown]
  - Alopecia [Unknown]
  - Pruritus [Unknown]
  - Rhinorrhoea [Unknown]
  - Hypotension [Unknown]
  - Diarrhoea [Unknown]
  - Hypersomnia [Recovered/Resolved]
  - Fatigue [Recovered/Resolved]

NARRATIVE: CASE EVENT DATE: 20230517
